FAERS Safety Report 21222070 (Version 2)
Quarter: 2022Q3

REPORT INFORMATION
  Report Type: Spontaneous
  Country: FR (occurrence: FR)
  Receive Date: 20220817
  Receipt Date: 20220926
  Transmission Date: 20221027
  Serious: Yes (Death, Other)
  Sender: FDA-Public Use
  Company Number: FR-CELLTRION HEALTHCARE HUNGARY KFT-2022FR011161

PATIENT

DRUGS (6)
  1. METHOTREXATE [Suspect]
     Active Substance: METHOTREXATE
     Indication: Anti-neutrophil cytoplasmic antibody positive vasculitis
     Dosage: UNK
     Route: 065
  2. CYCLOPHOSPHAMIDE [Suspect]
     Active Substance: CYCLOPHOSPHAMIDE
     Indication: Anti-neutrophil cytoplasmic antibody positive vasculitis
     Dosage: UNK
     Route: 065
  3. RITUXIMAB [Suspect]
     Active Substance: RITUXIMAB
     Indication: Anti-neutrophil cytoplasmic antibody positive vasculitis
     Dosage: 500 MILLIGRAM 6 MONTHS APART MAINTENANCE THERAPY
     Route: 065
  4. RITUXIMAB [Suspect]
     Active Substance: RITUXIMAB
     Dosage: 375 MG/SQ. METER Q4W EMISSION INDUCTION THERAPY
     Route: 065
  5. RITUXIMAB [Suspect]
     Active Substance: RITUXIMAB
     Dosage: 1000 MG Q2W 2 INFUSIONS REMISSION THERAPY
     Route: 065
  6. RITUXIMAB [Suspect]
     Active Substance: RITUXIMAB
     Dosage: UNK (INDUCTION THERAPY)
     Route: 065

REACTIONS (21)
  - Death [Fatal]
  - Anti-neutrophil cytoplasmic antibody positive vasculitis [Unknown]
  - Septic shock [Unknown]
  - Ophthalmic herpes zoster [Unknown]
  - Immunodeficiency [Unknown]
  - Cholecystitis infective [Unknown]
  - Osteomyelitis bacterial [Unknown]
  - Pulmonary nocardiosis [Unknown]
  - Pseudomonas infection [Unknown]
  - Pyelonephritis [Unknown]
  - Cholangitis [Unknown]
  - Bacteraemia [Unknown]
  - Cholecystitis [Unknown]
  - Pneumonia pseudomonal [Unknown]
  - Pneumonia bacterial [Unknown]
  - Arthritis bacterial [Unknown]
  - Pneumonia [Unknown]
  - Nocardiosis [Unknown]
  - Influenza [Unknown]
  - Respiratory tract infection viral [Unknown]
  - Osteitis [Unknown]
